FAERS Safety Report 17430157 (Version 3)
Quarter: 2020Q1

REPORT INFORMATION
  Report Type: Spontaneous
  Country: US (occurrence: US)
  Receive Date: 20200213
  Receipt Date: 20200320
  Transmission Date: 20200409
  Serious: Yes (Death, Other)
  Sender: FDA-Public Use
  Company Number: US-AUROBINDO-AUR-APL-2020-007015

PATIENT
  Sex: Male
  Weight: 124 kg

DRUGS (2)
  1. CLOZAPINE TABLET USP 25 MG [Suspect]
     Active Substance: CLOZAPINE
     Indication: PRODUCT USED FOR UNKNOWN INDICATION
     Dosage: 25 MILLIGRAM, FOR TWO WEEKS
     Route: 048
     Dates: start: 20191014
  2. CLOZAPINE 50 MG TABLET USP [Suspect]
     Active Substance: CLOZAPINE
     Indication: PRODUCT USED FOR UNKNOWN INDICATION
     Dosage: 50 MILLIGRAM, 1 WEEKS
     Route: 048

REACTIONS (2)
  - Hyperglycaemia [Fatal]
  - Sepsis [Fatal]
